FAERS Safety Report 12886862 (Version 2)
Quarter: 2017Q1

REPORT INFORMATION
  Report Type: Spontaneous
  Country: US (occurrence: US)
  Receive Date: 20161026
  Receipt Date: 20170127
  Transmission Date: 20170428
  Serious: No
  Sender: FDA-Public Use
  Company Number: US-ENDO PHARMACEUTICALS INC.-2016-005777

PATIENT
  Age: 56 Year
  Sex: Male
  Weight: 104.42 kg

DRUGS (4)
  1. BELBUCA [Suspect]
     Active Substance: BUPRENORPHINE HYDROCHLORIDE
     Indication: BACK PAIN
     Route: 002
     Dates: start: 201608, end: 201608
  2. GABAPENTIN. [Concomitant]
     Active Substance: GABAPENTIN
     Indication: PAIN IN EXTREMITY
  3. GABAPENTIN. [Concomitant]
     Active Substance: GABAPENTIN
     Indication: BACK PAIN
  4. BELBUCA [Suspect]
     Active Substance: BUPRENORPHINE HYDROCHLORIDE
     Indication: PAIN IN EXTREMITY
     Route: 002
     Dates: start: 2016

REACTIONS (7)
  - Product adhesion issue [Unknown]
  - Stomatitis [Not Recovered/Not Resolved]
  - Therapeutic response unexpected [Unknown]
  - Application site swelling [Unknown]
  - Application site irritation [Unknown]
  - Medication residue present [Unknown]
  - Product packaging issue [Unknown]

NARRATIVE: CASE EVENT DATE: 201608
